FAERS Safety Report 23083168 (Version 1)
Quarter: 2023Q4

REPORT INFORMATION
  Report Type: Spontaneous
  Country: CA (occurrence: None)
  Receive Date: 20231019
  Receipt Date: 20231019
  Transmission Date: 20240110
  Serious: Yes (Other)
  Sender: FDA-Public Use
  Company Number: CA-PFIZER INC-202300331292

PATIENT
  Age: 60 Year
  Sex: Female

DRUGS (5)
  1. METHOTREXATE [Suspect]
     Active Substance: METHOTREXATE
     Indication: Polyarteritis nodosa
  2. METHOTREXATE [Suspect]
     Active Substance: METHOTREXATE
  3. COLCHICINE [Suspect]
     Active Substance: COLCHICINE
     Indication: Polyarteritis nodosa
  4. DAPSONE [Suspect]
     Active Substance: DAPSONE
     Indication: Polyarteritis nodosa
  5. PREDNISOLONE [Suspect]
     Active Substance: PREDNISOLONE
     Indication: Polyarteritis nodosa

REACTIONS (3)
  - Product use in unapproved indication [Unknown]
  - Rebound effect [Unknown]
  - Treatment failure [Unknown]
